FAERS Safety Report 12667252 (Version 1)
Quarter: 2016Q3

REPORT INFORMATION
  Report Type: Spontaneous
  Country: US (occurrence: None)
  Receive Date: 20160818
  Receipt Date: 20160818
  Transmission Date: 20161109
  Serious: Yes (Life-Threatening, Disabling, Other)
  Sender: FDA-Public Use
  Company Number: None

PATIENT
  Age: 67 Year
  Sex: Female
  Weight: 65.77 kg

DRUGS (21)
  1. BENADRYL [Concomitant]
     Active Substance: DIPHENHYDRAMINE HYDROCHLORIDE
  2. BAYER (NOW ASCENCIA) BLOOD SUGAR TEST STRIPS [Concomitant]
  3. CA [Concomitant]
  4. VITAMIN E [Concomitant]
     Active Substance: .ALPHA.-TOCOPHEROL
  5. FISH OIL [Concomitant]
     Active Substance: FISH OIL
  6. APIDRA [Suspect]
     Active Substance: INSULIN GLULISINE
     Indication: TYPE 1 DIABETES MELLITUS
     Dosage: U-100 2 TO 10 UNITS AS NEEDED INJECTION
     Dates: start: 19660804
  7. LEVOTHYROXIN [Concomitant]
     Active Substance: LEVOTHYROXINE
  8. MINERALS [Concomitant]
     Active Substance: MINERALS
  9. MG [Concomitant]
     Active Substance: MAGNESIUM
  10. VITAMIN D3 [Concomitant]
     Active Substance: CHOLECALCIFEROL
  11. B6 [Concomitant]
     Active Substance: PYRIDOXINE HYDROCHLORIDE
  12. POTASSIUM GLUCONTE [Concomitant]
  13. HAWTHORNE BERRY [Concomitant]
  14. LANTUS + APIDRA INSULIN [Concomitant]
  15. CURCUMIN [Concomitant]
     Active Substance: CURCUMIN
  16. VITATMINS [Concomitant]
  17. HERBS [Concomitant]
     Active Substance: HERBALS
  18. CAYENNE PEPPER [Concomitant]
     Active Substance: CAPSICUM
  19. ZN [Concomitant]
  20. IRON [Concomitant]
     Active Substance: IRON
  21. MOTRIN [Concomitant]
     Active Substance: IBUPROFEN

REACTIONS (11)
  - Flatulence [None]
  - Product quality issue [None]
  - Drug effect variable [None]
  - Blood potassium decreased [None]
  - Muscle spasms [None]
  - Hypoglycaemia unawareness [None]
  - Multiple injuries [None]
  - Rash [None]
  - Abnormal weight gain [None]
  - Respiratory tract congestion [None]
  - Product use issue [None]

NARRATIVE: CASE EVENT DATE: 20160804
